FAERS Safety Report 7973976-3 (Version None)
Quarter: 2011Q4

REPORT INFORMATION
  Report Type: 
  Country: None (occurrence: None)
  Receive Date: 20111213
  Receipt Date: 20111206
  Transmission Date: 20120403
  Serious: Yes (Hospitalization)
  Sender: FDA-Public Use
  Company Number: US-GLAXOSMITHKLINE-A0915698A

PATIENT
  Age: 42 Year
  Sex: Female
  Weight: 72.3 kg

DRUGS (2)
  1. AVANDIA [Suspect]
     Indication: DIABETES MELLITUS
     Dosage: 8MG PER DAY
     Route: 048
     Dates: start: 20020201, end: 20060601
  2. AVANDAMET [Suspect]
     Indication: DIABETES MELLITUS
     Route: 048
     Dates: start: 20060601, end: 20080501

REACTIONS (4)
  - HYPERTENSION [None]
  - DIASTOLIC DYSFUNCTION [None]
  - OEDEMA [None]
  - CARDIAC FAILURE CONGESTIVE [None]
